FAERS Safety Report 7095878-X (Version None)
Quarter: 2010Q4

REPORT INFORMATION
  Report Type: 
  Country: None (occurrence: None)
  Receive Date: 20101109
  Receipt Date: 20101109
  Transmission Date: 20110411
  Serious: Yes (Other)
  Sender: FDA-Public Use
  Company Number: None

PATIENT
  Age: 87 Year
  Sex: Female
  Weight: 40 kg

DRUGS (10)
  1. DIGOXIN [Suspect]
     Indication: ATRIAL FIBRILLATION
     Dosage: 500 MCG X1, 250 MCG X2, 125 MCG DAILY PO
     Route: 048
     Dates: start: 20100818, end: 20100819
  2. ASPIRIN [Concomitant]
  3. DONEPEZIL HCL [Concomitant]
  4. LEVOTHYROXINE [Concomitant]
  5. OMEGA 3 FATTY ACID [Concomitant]
  6. PRAVASTATIN [Concomitant]
  7. LEVOFLOXACIN [Concomitant]
  8. DILTIAZEM CD [Concomitant]
  9. ENOXAPARIN SODIUM [Concomitant]
  10. WARFARIN [Concomitant]

REACTIONS (4)
  - BRADYCARDIA [None]
  - CARDIOACTIVE DRUG LEVEL INCREASED [None]
  - NAUSEA [None]
  - VOMITING [None]
